FAERS Safety Report 8611329 (Version 2)
Quarter: 2012Q4

REPORT INFORMATION
  Report Type: 
  Country: DE (occurrence: DE)
  Receive Date: 20120612
  Receipt Date: 20120911
  Transmission Date: 20130627
  Serious: Yes (Life-Threatening, Hospitalization)
  Sender: FDA-Public Use
  Company Number: DE-UCBSA-058970

PATIENT
  Age: 72 Year
  Sex: Male
  Weight: 76 kg

DRUGS (4)
  1. CIMZIA [Suspect]
     Indication: RHEUMATOID ARTHRITIS
     Route: 058
     Dates: start: 201009, end: 201105
  2. SULFASALAZIN [Concomitant]
     Indication: RHEUMATOID ARTHRITIS
  3. MTX [Concomitant]
     Indication: RHEUMATOID ARTHRITIS
     Dates: start: 200910, end: 201108
  4. MTX [Concomitant]
     Indication: RHEUMATOID ARTHRITIS
     Dates: start: 200701, end: 200902

REACTIONS (2)
  - Tuberculosis [Recovering/Resolving]
  - Polyneuropathy [Unknown]
